FAERS Safety Report 10866390 (Version 1)
Quarter: 2015Q1

REPORT INFORMATION
  Report Type: Spontaneous
  Country: US (occurrence: None)
  Receive Date: 20150219
  Receipt Date: 20150219
  Transmission Date: 20150721
  Serious: Yes (Other)
  Sender: FDA-Public Use
  Company Number: None

PATIENT
  Age: 41 Year
  Sex: Female
  Weight: 132.45 kg

DRUGS (1)
  1. NAFTIN [Suspect]
     Active Substance: NAFTIFINE HYDROCHLORIDE
     Indication: LOCALISED INFECTION
     Dosage: RUB ON AFFECTED AREA  APPLIED TO A SURFACE, USUALLY THE SKIN
     Dates: start: 20150202, end: 20150203

REACTIONS (9)
  - Hypersensitivity [None]
  - Blister [None]
  - Skin exfoliation [None]
  - Pain in extremity [None]
  - Skin discolouration [None]
  - Eczema [None]
  - Skin disorder [None]
  - Wound drainage [None]
  - Bacterial infection [None]

NARRATIVE: CASE EVENT DATE: 20150209
